FAERS Safety Report 25514048 (Version 1)
Quarter: 2025Q3

REPORT INFORMATION
  Report Type: Spontaneous
  Country: US (occurrence: US)
  Receive Date: 20250703
  Receipt Date: 20250703
  Transmission Date: 20251020
  Serious: No
  Sender: RADIUS PHARM
  Company Number: US-RADIUS HEALTH INC.-2024US009688

PATIENT
  Age: 67 Year
  Sex: Female
  Weight: 61.905 kg

DRUGS (1)
  1. TYMLOS [Suspect]
     Active Substance: ABALOPARATIDE
     Indication: Product used for unknown indication
     Route: 058
     Dates: start: 20241115

REACTIONS (9)
  - Headache [Unknown]
  - Pain [Unknown]
  - Pain in extremity [Unknown]
  - Back pain [Unknown]
  - Sleep disorder [Unknown]
  - Nocturia [Unknown]
  - Oropharyngeal pain [Unknown]
  - Dizziness [Unknown]
  - Sciatica [Unknown]

NARRATIVE: CASE EVENT DATE: 20241101
